FAERS Safety Report 24432435 (Version 1)
Quarter: 2024Q4

REPORT INFORMATION
  Report Type: Report from Study
  Country: US (occurrence: US)
  Receive Date: 20241014
  Receipt Date: 20241014
  Transmission Date: 20250115
  Serious: Yes (Other)
  Sender: ROCHE
  Company Number: US-ROCHE-10000101229

PATIENT

DRUGS (1)
  1. XOLAIR [Suspect]
     Active Substance: OMALIZUMAB
     Indication: Product used for unknown indication
     Route: 065

REACTIONS (7)
  - Anaphylactic reaction [Unknown]
  - Antinuclear antibody [Unknown]
  - Autoimmune thyroiditis [Unknown]
  - Ehlers-Danlos syndrome [Unknown]
  - Postural orthostatic tachycardia syndrome [Unknown]
  - Drug ineffective [Unknown]
  - Frustration tolerance decreased [Unknown]
